FAERS Safety Report 20848019 (Version 1)
Quarter: 2022Q2

REPORT INFORMATION
  Report Type: Spontaneous
  Country: US (occurrence: None)
  Receive Date: 20220518
  Receipt Date: 20220518
  Transmission Date: 20220720
  Serious: No
  Sender: FDA-Public Use
  Company Number: None

PATIENT
  Age: 62 Year
  Sex: Female

DRUGS (1)
  1. HUMIRA [Suspect]
     Active Substance: ADALIMUMAB
     Indication: Rheumatoid arthritis
     Dosage: OTHER FREQUENCY : EVERY 14 DAYS;?
     Route: 058
     Dates: start: 20171010

REACTIONS (5)
  - Sepsis [None]
  - Treatment noncompliance [None]
  - Nephrolithiasis [None]
  - Cystitis [None]
  - Kidney infection [None]

NARRATIVE: CASE EVENT DATE: 20220301
